FAERS Safety Report 6104475-1 (Version None)
Quarter: 2009Q1

REPORT INFORMATION
  Report Type: 
  Country: None (occurrence: None)
  Receive Date: 20090227
  Receipt Date: 20080325
  Transmission Date: 20090719
  Serious: Yes (Hospitalization)
  Sender: FDA-Public Use
  Company Number: RB-0545-2008

PATIENT
  Age: 30 Year
  Sex: Male
  Weight: 106.5953 kg

DRUGS (3)
  1. SUBOXONE [Suspect]
     Indication: DRUG DEPENDENCE
     Dosage: 16 MG INITIAL DOSE, ANOTHER 24 MG OVER 22 HOUR PERIOD SUBLINGUAL; SUBLINGUAL
     Route: 060
     Dates: start: 20080324, end: 20080325
  2. SUBOXONE [Suspect]
     Indication: DRUG DEPENDENCE
     Dosage: 16 MG INITIAL DOSE, ANOTHER 24 MG OVER 22 HOUR PERIOD SUBLINGUAL; SUBLINGUAL
     Route: 060
     Dates: start: 20080326
  3. ADDERALL 10 [Concomitant]

REACTIONS (1)
  - WITHDRAWAL SYNDROME [None]
